FAERS Safety Report 18919248 (Version 1)
Quarter: 2021Q1

REPORT INFORMATION
  Report Type: Report from Study
  Country: GB (occurrence: GB)
  Receive Date: 20210220
  Receipt Date: 20210220
  Transmission Date: 20210420
  Serious: Yes (Death, Hospitalization)
  Sender: FDA-Public Use
  Company Number: GB-TAKEDA-2019TUS040540

PATIENT
  Age: 63 Year
  Sex: Male
  Weight: 126.6 kg

DRUGS (3)
  1. DECADRON [Concomitant]
     Active Substance: DEXAMETHASONE
     Dosage: 20 MILLIGRAM
     Route: 048
     Dates: start: 20190313, end: 20190510
  2. FARYDAK [Concomitant]
     Active Substance: PANOBINOSTAT
     Dosage: 20 MILLIGRAM
     Route: 048
     Dates: start: 20190313, end: 20190510
  3. BORTEZOMIB. [Suspect]
     Active Substance: BORTEZOMIB
     Indication: PLASMA CELL MYELOMA
     Dosage: 1.3 MILLIGRAM/SQ. METER
     Route: 058
     Dates: start: 20190313

REACTIONS (2)
  - Atrial fibrillation [Recovered/Resolved]
  - Asthenia [Fatal]

NARRATIVE: CASE EVENT DATE: 20190510
